FAERS Safety Report 4528621-6 (Version None)
Quarter: 2004Q4

REPORT INFORMATION
  Report Type: 
  Country: None (occurrence: None)
  Receive Date: 20041216
  Receipt Date: 20040924
  Transmission Date: 20050328
  Serious: Yes (Life-Threatening, Hospitalization)
  Sender: FDA-Public Use
  Company Number: GB-MERCK-0410GBR00028

PATIENT
  Age: 68 Year
  Sex: Male
  Weight: 102 kg

DRUGS (7)
  1. ZOCOR [Suspect]
     Indication: ANGINA PECTORIS
     Route: 048
     Dates: start: 20030316, end: 20030317
  2. ASPIRIN [Concomitant]
     Indication: MYOCARDIAL INFARCTION
     Route: 065
     Dates: start: 19890101, end: 20030323
  3. ASPIRIN [Concomitant]
     Route: 065
     Dates: start: 20030101
  4. AMLODIPINE BESYLATE [Concomitant]
     Indication: ANGINA PECTORIS
     Route: 048
     Dates: start: 20030316, end: 20030317
  5. ENOXAPARIN SODIUM [Concomitant]
     Indication: ANGINA PECTORIS
     Route: 058
     Dates: start: 20030315, end: 20030315
  6. METOCLOPRAMIDE [Concomitant]
     Indication: ANGINA PECTORIS
     Route: 042
     Dates: start: 20030315, end: 20030315
  7. MORPHINE [Concomitant]
     Indication: ANGINA PECTORIS
     Route: 042
     Dates: start: 20030315, end: 20030315

REACTIONS (12)
  - ACUTE CORONARY SYNDROME [None]
  - CATHETER SEPSIS [None]
  - CONFUSIONAL STATE [None]
  - DRUG HYPERSENSITIVITY [None]
  - HAEMOGLOBIN DECREASED [None]
  - HEADACHE [None]
  - JOINT EFFUSION [None]
  - NAUSEA [None]
  - RED BLOOD CELL SCHISTOCYTES PRESENT [None]
  - RETICULOCYTE COUNT INCREASED [None]
  - STAPHYLOCOCCAL SEPSIS [None]
  - THROMBOTIC THROMBOCYTOPENIC PURPURA [None]
